FAERS Safety Report 6240665-5 (Version None)
Quarter: 2009Q2

REPORT INFORMATION
  Report Type: 
  Country: None (occurrence: None)
  Receive Date: 20090623
  Receipt Date: 20081215
  Transmission Date: 20091009
  Serious: No
  Sender: FDA-Public Use
  Company Number: US-ASTRAZENECA-2008UW28015

PATIENT
  Age: 798 Month
  Sex: Female
  Weight: 99.8 kg

DRUGS (5)
  1. PULMICORT-100 [Suspect]
     Indication: ASTHMA
     Dosage: 90 MCG; 60 DOSES; 2 PUFFS
     Route: 055
  2. POTASSIUM CHLORIDE [Concomitant]
  3. ASPIRIN [Concomitant]
  4. DIAZIDE [Concomitant]
  5. SPIRIVA [Concomitant]

REACTIONS (4)
  - CHEST PAIN [None]
  - DYSPHONIA [None]
  - DYSPNOEA [None]
  - MALAISE [None]
